FAERS Safety Report 8117316-8 (Version None)
Quarter: 2012Q1

REPORT INFORMATION
  Report Type: 
  Country: None (occurrence: None)
  Receive Date: 20120206
  Receipt Date: 20120130
  Transmission Date: 20120608
  Serious: Yes (Death)
  Sender: FDA-Public Use
  Company Number: CA-ROCHE-792413

PATIENT
  Sex: Female

DRUGS (2)
  1. XELODA [Suspect]
     Indication: BREAST CANCER METASTATIC
     Dosage: FREQUENCY: DAILY
     Route: 048
     Dates: start: 20110505, end: 20110601
  2. WATER PILL NOS [Concomitant]

REACTIONS (2)
  - PULMONARY EMBOLISM [None]
  - CEREBROVASCULAR ACCIDENT [None]
